FAERS Safety Report 17083938 (Version 3)
Quarter: 2020Q1

REPORT INFORMATION
  Report Type: Report from Study
  Country: US (occurrence: US)
  Receive Date: 20191127
  Receipt Date: 20200224
  Transmission Date: 20200409
  Serious: Yes (Death, Congenital Anomaly)
  Sender: FDA-Public Use
  Company Number: NVSC2019US048369

PATIENT
  Age: 1 Day

DRUGS (1)
  1. COSENTYX [Suspect]
     Active Substance: SECUKINUMAB
     Indication: FOETAL EXPOSURE DURING PREGNANCY
     Dosage: MATERNAL DOSE (300 MG, QMO)
     Route: 064
     Dates: start: 201901, end: 201902

REACTIONS (2)
  - Foetal exposure during pregnancy [Unknown]
  - Cardiac disorder [Fatal]

NARRATIVE: CASE EVENT DATE: 20191016
